FAERS Safety Report 24303619 (Version 2)
Quarter: 2024Q4

REPORT INFORMATION
  Report Type: Spontaneous
  Country: IT (occurrence: IT)
  Receive Date: 20240910
  Receipt Date: 20241015
  Transmission Date: 20250115
  Serious: Yes (Disabling, Other)
  Sender: PFIZER
  Company Number: None

PATIENT
  Age: 72 Year
  Sex: Male
  Weight: 63 kg

DRUGS (2)
  1. INLYTA [Suspect]
     Active Substance: AXITINIB
     Indication: Metastatic renal cell carcinoma
     Dosage: 3 MG, 2X/DAY
     Route: 048
     Dates: start: 20220104, end: 20240624
  2. KEYTRUDA [Suspect]
     Active Substance: PEMBROLIZUMAB
     Indication: Metastatic renal cell carcinoma
     Dosage: 200 MG, CYCLIC (EVERY 3 WEEKS)
     Route: 042
     Dates: start: 20220104, end: 20240520

REACTIONS (1)
  - Glomerulonephritis [Recovering/Resolving]

NARRATIVE: CASE EVENT DATE: 20240805
